FAERS Safety Report 7963113-3 (Version None)
Quarter: 2011Q4

REPORT INFORMATION
  Report Type: 
  Country: None (occurrence: None)
  Receive Date: 20111207
  Receipt Date: 20111205
  Transmission Date: 20120403
  Serious: Yes (Hospitalization)
  Sender: FDA-Public Use
  Company Number: DE-ROCHE-1019207

PATIENT
  Age: 81 Year
  Sex: Male
  Weight: 90 kg

DRUGS (13)
  1. CLORAZEPATE DIPOTASSIUM [Concomitant]
     Dates: start: 20111117, end: 20111117
  2. FLUOROURACIL [Suspect]
     Indication: METASTATIC MALIGNANT MELANOMA
     Route: 042
     Dates: start: 20111122
  3. TAMSULOSIN HCL [Concomitant]
  4. GODAMED [Concomitant]
  5. TAVOR (GERMANY) [Concomitant]
     Dates: start: 20111126, end: 20111126
  6. OXALIPLATIN [Suspect]
     Indication: METASTATIC MALIGNANT MELANOMA
     Route: 042
     Dates: start: 20111122
  7. HEPARIN [Concomitant]
     Dates: start: 20111114
  8. CLORAZEPATE DIPOTASSIUM [Concomitant]
     Dates: start: 20111118, end: 20111118
  9. TORSEMIDE [Concomitant]
     Dates: start: 20111126
  10. ACETAMINOPHEN [Concomitant]
     Dates: start: 20111204, end: 20111204
  11. LEUCOVORIN CALCIUM [Suspect]
     Indication: METASTATIC MALIGNANT MELANOMA
     Route: 042
     Dates: start: 20111122
  12. RAMIPRIL [Concomitant]
  13. AVASTIN [Suspect]
     Indication: METASTATIC MALIGNANT MELANOMA
     Route: 042
     Dates: start: 20111122

REACTIONS (4)
  - ABDOMINAL PAIN [None]
  - DIARRHOEA [None]
  - GENERAL PHYSICAL HEALTH DETERIORATION [None]
  - VOMITING [None]
